FAERS Safety Report 8007357-3 (Version None)
Quarter: 2011Q4

REPORT INFORMATION
  Report Type: 
  Country: None (occurrence: None)
  Receive Date: 20111222
  Receipt Date: 20111222
  Transmission Date: 20120403
  Serious: Yes (Life-Threatening)
  Sender: FDA-Public Use
  Company Number: None

PATIENT
  Age: 64 Year
  Sex: Male
  Weight: 100 kg

DRUGS (1)
  1. WARFARIN SODIUM [Suspect]
     Indication: ATRIAL FIBRILLATION
     Dosage: PO
     Route: 048
     Dates: start: 20080320, end: 20111010

REACTIONS (6)
  - CEREBRAL AMYLOID ANGIOPATHY [None]
  - HYPERTENSION [None]
  - TRAUMATIC HAEMORRHAGE [None]
  - INTRAVENTRICULAR HAEMORRHAGE [None]
  - HAEMORRHAGIC TRANSFORMATION STROKE [None]
  - HAEMORRHAGE INTRACRANIAL [None]
